FAERS Safety Report 4421758-1 (Version None)
Quarter: 2004Q3

REPORT INFORMATION
  Report Type: 
  Country: None (occurrence: None)
  Receive Date: 20040806
  Receipt Date: 20040715
  Transmission Date: 20050211
  Serious: Yes (Other)
  Sender: FDA-Public Use
  Company Number: USA040464193

PATIENT
  Age: 71 Year
  Sex: Female

DRUGS (2)
  1. ZYPREXA [Suspect]
     Indication: SCHIZOAFFECTIVE DISORDER
     Dosage: 25 MG DAY
     Route: 048
  2. MELLARIL [Concomitant]

REACTIONS (3)
  - BLOOD PROLACTIN INCREASED [None]
  - BREAST CANCER [None]
  - PRESCRIBED OVERDOSE [None]
